FAERS Safety Report 6740606-8 (Version None)
Quarter: 2010Q2

REPORT INFORMATION
  Report Type: 
  Country: None (occurrence: None)
  Receive Date: 20100525
  Receipt Date: 20100511
  Transmission Date: 20101027
  Serious: Yes (Hospitalization)
  Sender: FDA-Public Use
  Company Number: JP-MYLANLABS-2010S1008290

PATIENT
  Age: 77 Year
  Sex: Female

DRUGS (2)
  1. CIMETIDINE [Interacting]
     Route: 065
  2. CILOSTAZOL [Suspect]
     Route: 065

REACTIONS (2)
  - DRUG INTERACTION [None]
  - INTRA-ABDOMINAL HAEMATOMA [None]
